FAERS Safety Report 5506531-5 (Version None)
Quarter: 2007Q4

REPORT INFORMATION
  Report Type: 
  Country: None (occurrence: None)
  Receive Date: 20071105
  Receipt Date: 20071029
  Transmission Date: 20080405
  Serious: Yes (Hospitalization)
  Sender: FDA-Public Use
  Company Number: B0487479A

PATIENT
  Age: 69 Year
  Sex: Female

DRUGS (8)
  1. VALTREX [Suspect]
     Indication: HERPES ZOSTER
     Dosage: 500MG PER DAY
     Route: 048
     Dates: start: 20070905, end: 20070906
  2. ACYCLOVIR [Suspect]
     Indication: DRUG USE FOR UNKNOWN INDICATION
     Route: 048
  3. RISUMIC [Concomitant]
     Route: 048
  4. ASPIRIN [Concomitant]
     Route: 048
  5. ZOLPIDEM [Concomitant]
     Route: 048
  6. GAMOFA [Concomitant]
  7. PHOSBLOCK [Concomitant]
     Route: 048
  8. KALIMATE [Concomitant]
     Route: 048

REACTIONS (3)
  - ALTERED STATE OF CONSCIOUSNESS [None]
  - DRUG TOXICITY [None]
  - DYSARTHRIA [None]
